FAERS Safety Report 19349919 (Version 1)
Quarter: 2021Q2

REPORT INFORMATION
  Report Type: Spontaneous
  Country: US (occurrence: US)
  Receive Date: 20210601
  Receipt Date: 20210601
  Transmission Date: 20210717
  Serious: No
  Sender: FDA-Public Use
  Company Number: None

PATIENT
  Age: 73 Year
  Sex: Female

DRUGS (12)
  1. ACETAMINOPHEN PRN [Concomitant]
  2. MVI [Concomitant]
     Active Substance: VITAMINS
  3. COENZYME Q10 [Concomitant]
     Active Substance: DIETARY SUPPLEMENT\UBIDECARENONE
  4. CALCIUM WITH VITAMIN D [Concomitant]
     Active Substance: CALCIUM\VITAMIN D
  5. FOLIC ACID. [Concomitant]
     Active Substance: FOLIC ACID
  6. FISH OIL [Concomitant]
     Active Substance: FISH OIL
  7. PREDNISONE. [Concomitant]
     Active Substance: PREDNISONE
  8. MTX WEEKLY [Concomitant]
  9. TURMERIC [Concomitant]
     Active Substance: HERBALS\TURMERIC
  10. XELJANZ [Suspect]
     Active Substance: TOFACITINIB CITRATE
     Indication: RHEUMATOID ARTHRITIS
     Route: 048
     Dates: start: 20210126, end: 20210528
  11. IBU PRN [Concomitant]
  12. GLUCOSAMINE WITH CHONDROTIN [Concomitant]

REACTIONS (3)
  - Gastric disorder [None]
  - Rash [None]
  - Swelling face [None]

NARRATIVE: CASE EVENT DATE: 20210528
